FAERS Safety Report 10141742 (Version 3)
Quarter: 2014Q3

REPORT INFORMATION
  Report Type: Report from Study
  Country: IL (occurrence: IL)
  Receive Date: 20140429
  Receipt Date: 20140801
  Transmission Date: 20150326
  Serious: Yes (Death, Life-Threatening, Hospitalization)
  Sender: FDA-Public Use
  Company Number: IL-BRISTOL-MYERS SQUIBB COMPANY-20614582

PATIENT
  Age: 69 Year
  Sex: Male
  Weight: 89 kg

DRUGS (11)
  1. SIMVASTATIN. [Concomitant]
     Active Substance: SIMVASTATIN
     Dates: start: 1988
  2. STILNOX [Concomitant]
     Active Substance: ZOLPIDEM TARTRATE
     Dates: start: 201210
  3. FLUOCORTOLONE [Concomitant]
     Active Substance: FLUOCORTOLONE
     Dates: start: 20130822
  4. LORATADINE. [Concomitant]
     Active Substance: LORATADINE
     Dates: start: 20130822
  5. NORMITEN [Concomitant]
     Active Substance: ATENOLOL
     Dates: start: 1988
  6. PREDNISONE. [Concomitant]
     Active Substance: PREDNISONE
     Dosage: 5MAR-10,11-13,14-16,17-20,21-23,24-26,27-29?30MAR-9JUL?10JUL-22,23-25,26JUL-CONT
     Dates: start: 20130305
  7. IPILIMUMAB [Suspect]
     Active Substance: IPILIMUMAB
     Indication: PROSTATE CANCER
     Dosage: LAST DOSE:25MAR2014
     Route: 042
     Dates: start: 20120305, end: 20140325
  8. ENALAPRIL [Concomitant]
     Active Substance: ENALAPRIL
     Dates: start: 1988
  9. CHLORPHENIRAMINE [Concomitant]
     Active Substance: CHLORPHENIRAMINE
     Dates: start: 20131104
  10. ACETYLSALICYLIC ACID [Concomitant]
     Active Substance: ASPIRIN
     Dates: start: 1988
  11. METFORMIN [Concomitant]
     Active Substance: METFORMIN HYDROCHLORIDE
     Dates: start: 2001

REACTIONS (3)
  - Oesophageal perforation [Not Recovered/Not Resolved]
  - Pulmonary embolism [Not Recovered/Not Resolved]
  - Sepsis [Fatal]

NARRATIVE: CASE EVENT DATE: 20140402
